FAERS Safety Report 8617322-0 (Version None)
Quarter: 2012Q3

REPORT INFORMATION
  Report Type: 
  Country: None (occurrence: None)
  Receive Date: 20120823
  Receipt Date: 20120809
  Transmission Date: 20120928
  Serious: Yes (Death)
  Sender: FDA-Public Use
  Company Number: US-MYLANLABS-2010S1011921

PATIENT
  Age: 46 Year
  Sex: Male
  Weight: 109 kg

DRUGS (13)
  1. TRAMADOL HCL [Suspect]
  2. CYMBALTA [Concomitant]
     Route: 048
  3. PROPOXYPHENE HCL [Suspect]
  4. ONDANSETRON [Concomitant]
  5. AZATHIOPRINE SODIUM [Concomitant]
  6. FENTANYL-100 [Suspect]
     Indication: PAIN
     Dosage: CHANGE Q2D
     Route: 062
     Dates: end: 20080702
  7. OXYCODONE HCL AND ACETAMINOPHEN [Concomitant]
     Indication: PAIN
     Route: 048
  8. ALPRAZOLAM [Concomitant]
     Indication: ANXIETY
     Route: 048
  9. TIZANIDINE HYDROCHLORIDE [Concomitant]
  10. FLOMAX [Concomitant]
  11. ANDROGEL [Concomitant]
     Route: 061
  12. PREDNISONE TAB [Concomitant]
  13. GABAPENTIN [Concomitant]
     Route: 061

REACTIONS (3)
  - TOXICITY TO VARIOUS AGENTS [None]
  - DRUG ABUSE [None]
  - POLYMEDICATION [None]
